FAERS Safety Report 14584120 (Version 1)
Quarter: 2018Q1

REPORT INFORMATION
  Report Type: Report from Study
  Country: US (occurrence: US)
  Receive Date: 20180228
  Receipt Date: 20180228
  Transmission Date: 20180509
  Serious: Yes (Other)
  Sender: FDA-Public Use
  Company Number: US-GILEAD-2018-0323467

PATIENT
  Age: 51 Year
  Sex: Male

DRUGS (1)
  1. EMTRICITABINE/TENOFOVIR ALAFENAMIDE [Suspect]
     Active Substance: EMTRICITABINE\TENOFOVIR
     Indication: HIV INFECTION
     Dosage: 225 MG, UNK
     Route: 048
     Dates: start: 20161101, end: 20180220

REACTIONS (2)
  - Neoplasm malignant [Not Recovered/Not Resolved]
  - Intentional product use issue [Not Recovered/Not Resolved]
